FAERS Safety Report 9992506 (Version 8)
Quarter: 2015Q1

REPORT INFORMATION
  Report Type: Report from Study
  Country: CA (occurrence: CA)
  Receive Date: 20140310
  Receipt Date: 20150102
  Transmission Date: 20150721
  Serious: Yes (Other)
  Sender: FDA-Public Use
  Company Number: CA-BAYER-2013-123622

PATIENT
  Age: 67 Year
  Sex: Male

DRUGS (6)
  1. STIVARGA [Suspect]
     Active Substance: REGORAFENIB
     Indication: COLORECTAL CANCER METASTATIC
     Dosage: 160 MG, QD
     Route: 048
     Dates: start: 20130923, end: 201310
  2. STIVARGA [Suspect]
     Active Substance: REGORAFENIB
     Indication: COLORECTAL CANCER METASTATIC
     Dosage: 120 MG, QD
     Route: 048
     Dates: start: 201310, end: 20141024
  3. SERTRALINE [Concomitant]
     Active Substance: SERTRALINE HYDROCHLORIDE
  4. LATANOPROST. [Concomitant]
     Active Substance: LATANOPROST
  5. STIVARGA [Suspect]
     Active Substance: REGORAFENIB
     Indication: COLORECTAL CANCER METASTATIC
     Dosage: 160 MG, QD
     Route: 048
     Dates: start: 20140924, end: 201411
  6. ATROVENT [Concomitant]
     Active Substance: IPRATROPIUM BROMIDE

REACTIONS (20)
  - Blood pressure fluctuation [Not Recovered/Not Resolved]
  - Dyspnoea [Recovering/Resolving]
  - Pain in extremity [Unknown]
  - Respiratory tract congestion [Recovering/Resolving]
  - Ageusia [Unknown]
  - Burning sensation [None]
  - Gait disturbance [Recovering/Resolving]
  - Pain in extremity [Recovering/Resolving]
  - Weight decreased [Unknown]
  - Fatigue [None]
  - Constipation [None]
  - Cough [Recovered/Resolved]
  - Dysphonia [Not Recovered/Not Resolved]
  - Pulmonary pain [Recovering/Resolving]
  - Malaise [None]
  - Discomfort [None]
  - Pneumonia [Recovering/Resolving]
  - Blister [Recovering/Resolving]
  - Haemoptysis [None]
  - Haemoglobin decreased [None]

NARRATIVE: CASE EVENT DATE: 201309
